FAERS Safety Report 10101331 (Version 1)
Quarter: 2014Q2

REPORT INFORMATION
  Report Type: Spontaneous
  Country: US (occurrence: US)
  Receive Date: 20140424
  Receipt Date: 20140424
  Transmission Date: 20141212
  Serious: No
  Sender: FDA-Public Use
  Company Number: US-PFIZER INC-2014113540

PATIENT
  Age: 76 Year
  Sex: Male
  Weight: 56.69 kg

DRUGS (6)
  1. CHANTIX [Suspect]
     Indication: SMOKING CESSATION THERAPY
     Dosage: 0.5 MG, DAILY
     Dates: start: 20140418
  2. LEVETIRACETAM [Concomitant]
     Indication: GENERALISED TONIC-CLONIC SEIZURE
     Dosage: 750 MG, 2X/DAY
  3. BROVANA [Concomitant]
     Indication: CHRONIC OBSTRUCTIVE PULMONARY DISEASE
     Dosage: 15 UG, UNK
  4. BUDESONIDE [Concomitant]
     Indication: CHRONIC OBSTRUCTIVE PULMONARY DISEASE
     Dosage: 0.25 MG, 2X/DAY
  5. ALBUTEROL [Concomitant]
     Indication: CHRONIC OBSTRUCTIVE PULMONARY DISEASE
     Dosage: 2.5 MG, DAILY
  6. ALBUTEROL [Concomitant]
     Indication: ASTHMA

REACTIONS (2)
  - Skin wrinkling [Not Recovered/Not Resolved]
  - Disease progression [Not Recovered/Not Resolved]
